FAERS Safety Report 10369213 (Version 1)
Quarter: 2014Q3

REPORT INFORMATION
  Report Type: Spontaneous
  Country: US (occurrence: US)
  Receive Date: 20140807
  Receipt Date: 20140807
  Transmission Date: 20150326
  Serious: No
  Sender: FDA-Public Use
  Company Number: US-PFIZER INC-2014219971

PATIENT
  Age: 69 Year
  Sex: Female
  Weight: 77.1 kg

DRUGS (1)
  1. ATORVASTATIN CALCIUM. [Suspect]
     Active Substance: ATORVASTATIN CALCIUM
     Dosage: 40 MG, 1X/DAY (IN THE EVENING)
     Route: 048
     Dates: start: 2012

REACTIONS (3)
  - Influenza like illness [Unknown]
  - Muscular weakness [Unknown]
  - Pain [Unknown]
